FAERS Safety Report 5462472-3 (Version None)
Quarter: 2007Q3

REPORT INFORMATION
  Report Type: 
  Country: None (occurrence: None)
  Receive Date: 20070816
  Receipt Date: 20061213
  Transmission Date: 20080115
  Serious: Yes (Other)
  Sender: FDA-Public Use
  Company Number: 2006153485

PATIENT
  Sex: Female
  Weight: 62.1 kg

DRUGS (1)
  1. AZULFIDINE [Suspect]
     Indication: COLITIS ULCERATIVE
     Dosage: ORAL; 17 YEAR AGO
     Route: 048
     Dates: end: 20061026

REACTIONS (4)
  - DEPRESSION [None]
  - DIZZINESS [None]
  - HALLUCINATION [None]
  - HEADACHE [None]
